FAERS Safety Report 25576859 (Version 1)
Quarter: 2025Q3

REPORT INFORMATION
  Report Type: Spontaneous
  Country: US (occurrence: None)
  Receive Date: 20250718
  Receipt Date: 20250718
  Transmission Date: 20251021
  Serious: Yes (Hospitalization)
  Sender: FDA-CTU
  Company Number: None

PATIENT
  Age: 68 Year
  Sex: Female
  Weight: 66.1 kg

DRUGS (2)
  1. TASIGNA [Suspect]
     Active Substance: NILOTINIB
     Dates: end: 20230811
  2. PEMBROLIZUMAB [Suspect]
     Active Substance: PEMBROLIZUMAB
     Dates: end: 20230524

REACTIONS (15)
  - Syncope [None]
  - Nephritis [None]
  - Alanine aminotransferase increased [None]
  - Balance disorder [None]
  - Fall [None]
  - Head injury [None]
  - Electrocardiogram abnormal [None]
  - Electroencephalogram abnormal [None]
  - Metabolic encephalopathy [None]
  - Hypoxic-ischaemic encephalopathy [None]
  - Toxic encephalopathy [None]
  - Sedation [None]
  - X-ray limb abnormal [None]
  - Contusion [None]
  - Haematoma [None]

NARRATIVE: CASE EVENT DATE: 20230806
